FAERS Safety Report 6435568-7 (Version None)
Quarter: 2009Q4

REPORT INFORMATION
  Report Type: 
  Country: None (occurrence: None)
  Receive Date: 20091111
  Receipt Date: 20091104
  Transmission Date: 20100525
  Serious: Yes (Other)
  Sender: FDA-Public Use
  Company Number: FR-TEVA-214512ISR

PATIENT
  Sex: Male

DRUGS (8)
  1. FLUOROURACIL [Suspect]
     Indication: GASTRIC CANCER
     Dates: start: 20090902, end: 20090903
  2. FOLINIC ACID [Suspect]
     Indication: GASTRIC CANCER
     Route: 042
     Dates: start: 20090902, end: 20090903
  3. IRINOTECAN HYDROCHLORIDE [Suspect]
     Indication: GASTRIC CANCER
     Route: 042
     Dates: start: 20090902, end: 20090903
  4. ESOMEPRAZOLE MAGNESIUM [Concomitant]
  5. ACETYLSALICYLATE LYSINE [Concomitant]
  6. CANDESARTAN CILEXETIL [Concomitant]
  7. SOTALOL HCL [Concomitant]
  8. ROSUVASTATIN [Concomitant]

REACTIONS (1)
  - TOXIC SKIN ERUPTION [None]
